FAERS Safety Report 6359488-1 (Version None)
Quarter: 2009Q3

REPORT INFORMATION
  Report Type: 
  Country: None (occurrence: None)
  Receive Date: 20090917
  Receipt Date: 20090831
  Transmission Date: 20100115
  Serious: Yes (Other)
  Sender: FDA-Public Use
  Company Number: DE-AVENTIS-200911649DE

PATIENT
  Age: 70 Year
  Sex: Female

DRUGS (5)
  1. LANTUS [Suspect]
     Indication: DIABETES MELLITUS
     Dosage: DOSE: NOT REPORTED
     Route: 058
     Dates: start: 20020701
  2. CORDANUM [Concomitant]
     Indication: HYPERTENSION
     Route: 048
  3. HUMALOG [Concomitant]
     Indication: DIABETES MELLITUS
     Route: 058
  4. FAUSTAN [Concomitant]
     Indication: ANXIETY DISORDER
     Route: 048
  5. PULMICORT-100 [Concomitant]
     Indication: RESPIRATORY DISORDER
     Dosage: DOSE: NOT REPORTED
     Route: 055

REACTIONS (1)
  - LUNG NEOPLASM [None]
